FAERS Safety Report 6957884-2 (Version None)
Quarter: 2010Q3

REPORT INFORMATION
  Report Type: 
  Country: None (occurrence: None)
  Receive Date: 20100831
  Receipt Date: 20100819
  Transmission Date: 20110219
  Serious: Yes (Hospitalization, Other)
  Sender: FDA-Public Use
  Company Number: US-ELI_LILLY_AND_COMPANY-US201008006017

PATIENT
  Sex: Male

DRUGS (4)
  1. ZYPREXA [Suspect]
     Dosage: 15 MG, 2/D
  2. NAVANE [Concomitant]
     Dosage: 10 MG, 2/D
  3. CELEXA [Concomitant]
     Dosage: 40 MG, DAILY (1/D)
  4. COGENTIN [Concomitant]
     Dosage: 0.5 MG, 2/D

REACTIONS (3)
  - INTENTIONAL OVERDOSE [None]
  - MECHANICAL VENTILATION [None]
  - OVERDOSE [None]
